FAERS Safety Report 20434674 (Version 2)
Quarter: 2022Q1

REPORT INFORMATION
  Report Type: Spontaneous
  Country: BR (occurrence: BR)
  Receive Date: 20220206
  Receipt Date: 20220221
  Transmission Date: 20220423
  Serious: Yes (Other)
  Sender: FDA-Public Use
  Company Number: BR-NOVARTISPH-NVSC2022BR001113

PATIENT
  Age: 75 Year
  Sex: Male
  Weight: 84 kg

DRUGS (7)
  1. MIRTAZAPINE [Suspect]
     Active Substance: MIRTAZAPINE
     Indication: Depression
     Dosage: 1 DOSAGE FORM, QD
     Route: 048
  2. MIRTAZAPINE [Suspect]
     Active Substance: MIRTAZAPINE
     Dosage: 1 DOSAGE FORM, QD (15MG)
     Route: 048
  3. MIRTAZAPINE [Suspect]
     Active Substance: MIRTAZAPINE
     Dosage: 1 DOSAGE FORM, QD (30MG)
     Route: 048
  4. MIRTAZAPINE [Suspect]
     Active Substance: MIRTAZAPINE
     Dosage: 1 DOSAGE FORM, QD (45MG)
     Route: 048
  5. QUETIAPINE [Suspect]
     Active Substance: QUETIAPINE
     Indication: Bipolar disorder
     Dosage: UNK UNK, QD
     Route: 065
  6. LEVOMEPROMAZINE [Concomitant]
     Active Substance: LEVOMEPROMAZINE
     Indication: Sedation
     Dosage: 15 DRP, QD (STARTED 50 YEARS AGO)
     Route: 048
  7. LITHIUM CARBONATE [Concomitant]
     Active Substance: LITHIUM CARBONATE
     Indication: Bipolar disorder
     Dosage: 2 DOSAGE FORM, QD (STARTED 52 YEARS AGO, 2 TABLETS OF 300MG)
     Route: 048

REACTIONS (6)
  - Pituitary tumour [Not Recovered/Not Resolved]
  - Blood prolactin increased [Not Recovered/Not Resolved]
  - Dehydration [Not Recovered/Not Resolved]
  - Stress [Not Recovered/Not Resolved]
  - COVID-19 [Recovered/Resolved]
  - Drug ineffective [Unknown]

NARRATIVE: CASE EVENT DATE: 20220101
